FAERS Safety Report 6211376-7 (Version None)
Quarter: 2009Q2

REPORT INFORMATION
  Report Type: 
  Country: None (occurrence: None)
  Receive Date: 20090522
  Receipt Date: 20090204
  Transmission Date: 20091009
  Serious: No
  Sender: FDA-Public Use
  Company Number: 8035032

PATIENT
  Age: 49 Year
  Sex: Female
  Weight: 80.54 kg

DRUGS (11)
  1. CIMZIA [Suspect]
     Indication: CROHN'S DISEASE
     Dosage: 400 MG 1/2W SC
     Route: 058
     Dates: start: 20080618, end: 20080716
  2. CIMZIA [Suspect]
     Indication: CROHN'S DISEASE
     Dosage: 400 MG /M SC
     Route: 058
     Dates: start: 20080618
  3. NATURAL ESTROGEN [Concomitant]
  4. ACYCLOVIR [Concomitant]
  5. LISINOPRIL [Concomitant]
  6. LOPERAMIDE HYDROCHLORIDE [Concomitant]
  7. PROTONIX [Concomitant]
  8. TETRACYCLINE [Concomitant]
  9. NEOMYCIN [Concomitant]
  10. WELLBUTRIN [Concomitant]
  11. ESTROGEN [Concomitant]

REACTIONS (6)
  - ANXIETY [None]
  - ARTHRALGIA [None]
  - DEPRESSED MOOD [None]
  - FATIGUE [None]
  - NERVOUSNESS [None]
  - TREMOR [None]
